FAERS Safety Report 11825304 (Version 1)
Quarter: 2015Q4

REPORT INFORMATION
  Report Type: Spontaneous
  Country: GB (occurrence: GB)
  Receive Date: 20151211
  Receipt Date: 20151211
  Transmission Date: 20160305
  Serious: Yes (Hospitalization)
  Sender: FDA-Public Use
  Company Number: GB-ACCORD-036045

PATIENT
  Age: 61 Year
  Sex: Female

DRUGS (11)
  1. ATENOLOL/ATENOLOL HYDROCHLORIDE [Concomitant]
     Dosage: EACH MORNING
  2. CLENIL MODULITE [Concomitant]
     Active Substance: BECLOMETHASONE DIPROPIONATE
     Dosage: 50MICROGRAMS/DOSE INHALER
     Route: 055
  3. SERTRALINE [Suspect]
     Active Substance: SERTRALINE HYDROCHLORIDE
     Indication: PRODUCT USED FOR UNKNOWN INDICATION
     Route: 048
     Dates: start: 20151001, end: 20151005
  4. DOXYCYCLINE. [Concomitant]
     Active Substance: DOXYCYCLINE
     Dosage: 2 CAPSULES TAKEN FIRST DAY THEN ONE CAPSULE EACH DAY
     Dates: start: 20150917
  5. PREDNISOLONE. [Concomitant]
     Active Substance: PREDNISOLONE
     Dosage: FOR 5 MG (6 DAILY FOR 7 DAYS THEN REDUCE TO 5, 4, 3, 2, 1 EVERY 2 DAYS AND STOP) FROM 17-SEP-2015
     Dates: start: 20150911
  6. AMOXICILLIN. [Concomitant]
     Active Substance: AMOXICILLIN
     Dates: start: 20150911
  7. OMEPRAZOLE. [Concomitant]
     Active Substance: OMEPRAZOLE
     Dosage: RESTART IN A WEEK IF BLOOD SODIUM NORMAL
     Dates: end: 20151005
  8. BENDROFLUMETHIAZIDE [Concomitant]
     Active Substance: BENDROFLUMETHIAZIDE
     Dosage: STOPPED IN LIGHT OF ELECTROLYTE DISTURBANCE.
     Dates: end: 20151005
  9. AMLODIPINE [Concomitant]
     Active Substance: AMLODIPINE BESYLATE
  10. NAPROXEN. [Concomitant]
     Active Substance: NAPROXEN
  11. VENTOLIN [Concomitant]
     Active Substance: ALBUTEROL SULFATE
     Dosage: 100MICROGRAMS/DOSE EVOHALER
     Route: 055

REACTIONS (4)
  - Dysarthria [Unknown]
  - Dysuria [Unknown]
  - VIIth nerve paralysis [Unknown]
  - Hyponatraemia [Recovered/Resolved]

NARRATIVE: CASE EVENT DATE: 20151005
